FAERS Safety Report 7051230-4 (Version None)
Quarter: 2010Q4

REPORT INFORMATION
  Report Type: 
  Country: None (occurrence: None)
  Receive Date: 20101018
  Receipt Date: 20101018
  Transmission Date: 20110411
  Serious: Yes (Hospitalization)
  Sender: FDA-Public Use
  Company Number: None

PATIENT
  Age: 82 Year
  Sex: Female
  Weight: 49.8957 kg

DRUGS (1)
  1. FOSAMAX [Suspect]

REACTIONS (1)
  - FEMUR FRACTURE [None]
